FAERS Safety Report 25918823 (Version 1)
Quarter: 2025Q4

REPORT INFORMATION
  Report Type: Spontaneous
  Country: AU (occurrence: AU)
  Receive Date: 20251014
  Receipt Date: 20251014
  Transmission Date: 20260117
  Serious: Yes (Other)
  Sender: RANBAXY
  Company Number: AU-SUN PHARMACEUTICAL INDUSTRIES LTD-2025RR-531396

PATIENT
  Age: 54 Year
  Sex: Female

DRUGS (7)
  1. TERIFLUNOMIDE [Suspect]
     Active Substance: TERIFLUNOMIDE
     Indication: Multiple sclerosis
     Dosage: UNK
     Route: 065
  2. LOPERAMIDE [Suspect]
     Active Substance: LOPERAMIDE
     Indication: Enterocolitis
     Dosage: UNK
     Route: 065
  3. LOPERAMIDE [Suspect]
     Active Substance: LOPERAMIDE
     Indication: Chronic gastritis
  4. LOPERAMIDE [Suspect]
     Active Substance: LOPERAMIDE
     Indication: Duodenitis
  5. CHOLESTYRAMINE [Suspect]
     Active Substance: CHOLESTYRAMINE
     Indication: Enterocolitis
     Dosage: UNK
     Route: 065
  6. CHOLESTYRAMINE [Suspect]
     Active Substance: CHOLESTYRAMINE
     Indication: Duodenitis
  7. CHOLESTYRAMINE [Suspect]
     Active Substance: CHOLESTYRAMINE
     Indication: Chronic gastritis

REACTIONS (4)
  - Colitis ulcerative [Recovered/Resolved]
  - Therapeutic product effect incomplete [Recovered/Resolved]
  - Clostridium difficile infection [Recovered/Resolved]
  - Dysbiosis [Recovered/Resolved]
